FAERS Safety Report 13048257 (Version 1)
Quarter: 2016Q4

REPORT INFORMATION
  Report Type: Spontaneous
  Country: US (occurrence: US)
  Receive Date: 20161220
  Receipt Date: 20161220
  Transmission Date: 20170207
  Serious: Yes (Hospitalization)
  Sender: FDA-Public Use
  Company Number: None

PATIENT
  Age: 65 Year
  Sex: Female
  Weight: 79.2 kg

DRUGS (7)
  1. MULTAQ [Suspect]
     Active Substance: DRONEDARONE
     Indication: ATRIAL FIBRILLATION
     Dates: start: 20160901, end: 20161206
  2. METOPROLOL. [Concomitant]
     Active Substance: METOPROLOL
  3. FISH OIL [Concomitant]
     Active Substance: FISH OIL
  4. ELIQUIS [Concomitant]
     Active Substance: APIXABAN
  5. LEVEMIR [Concomitant]
     Active Substance: INSULIN DETEMIR
  6. VASOTEC [Concomitant]
     Active Substance: ENALAPRIL MALEATE
  7. METFORMIN [Concomitant]
     Active Substance: METFORMIN HYDROCHLORIDE

REACTIONS (4)
  - Dyspnoea [None]
  - Pruritus [None]
  - Weight increased [None]
  - Cardiac failure congestive [None]

NARRATIVE: CASE EVENT DATE: 20160906
